FAERS Safety Report 4680971-9 (Version None)
Quarter: 2005Q2

REPORT INFORMATION
  Report Type: 
  Country: None (occurrence: None)
  Receive Date: 20050603
  Receipt Date: 20050314
  Transmission Date: 20051028
  Serious: Yes (Other)
  Sender: FDA-Public Use
  Company Number: PHNU2005DE01358

PATIENT
  Age: 32 Year
  Sex: Female

DRUGS (1)
  1. COMBIPATCH [Suspect]
     Indication: AMENORRHOEA
     Dosage: 2 MG DAIYL
     Route: 048
     Dates: start: 20050221, end: 20050303

REACTIONS (4)
  - ABORTION SPONTANEOUS [None]
  - DRUG EXPOSURE DURING PREGNANCY [None]
  - FALL [None]
  - HAEMORRHAGE [None]
